FAERS Safety Report 4466658-6 (Version None)
Quarter: 2004Q4

REPORT INFORMATION
  Report Type: 
  Country: None (occurrence: None)
  Receive Date: 20041006
  Receipt Date: 20040908
  Transmission Date: 20050328
  Serious: Yes (Other)
  Sender: FDA-Public Use
  Company Number: MY-ROCHE-381850

PATIENT
  Age: 13 Year
  Sex: Male

DRUGS (2)
  1. FANSIDAR [Suspect]
     Indication: MALARIA
     Dosage: TRADE NAME ALSO REPORTED AS MALAFON.
     Route: 048
     Dates: start: 20031124
  2. PRIMAQUINE [Suspect]
     Indication: DRUG USE FOR UNKNOWN INDICATION
     Dosage: DRUG NAME REPORTED AS PRIMAQUINE/UPHAMAQUINE.
     Route: 048

REACTIONS (2)
  - ANAEMIA [None]
  - HAEMOLYSIS [None]
